FAERS Safety Report 16122330 (Version 1)
Quarter: 2019Q2

REPORT INFORMATION
  Report Type: Spontaneous
  Country: US (occurrence: US)
  Receive Date: 20190326
  Receipt Date: 20190326
  Transmission Date: 20190711
  Serious: Yes (Hospitalization)
  Sender: FDA-Public Use
  Company Number: None

PATIENT
  Age: 38 Year
  Sex: Female
  Weight: 60.75 kg

DRUGS (9)
  1. AMITIZA [Suspect]
     Active Substance: LUBIPROSTONE
     Indication: CONSTIPATION
     Dosage: ?          QUANTITY:60 CAPSULE(S);?
     Route: 048
  2. PROPRANOLOL HYDROCHLORIDE 40 MG [Concomitant]
     Active Substance: PROPRANOLOL HYDROCHLORIDE
  3. CALCIUM CITRATE [Concomitant]
     Active Substance: CALCIUM CITRATE
  4. VITAMIN D NOS [Concomitant]
     Active Substance: VITAMIN D NOS
  5. VITAMIN K2 [Concomitant]
     Active Substance: MENAQUINONE 6
  6. LUVOX 100 MG (2 A DAY) [Concomitant]
  7. CARBAMAZEPINE 400 MG [Concomitant]
  8. ARMOUR THYROID [Concomitant]
     Active Substance: THYROID, PORCINE
  9. VITAMIN B COMPLEX 100 MG [Concomitant]

REACTIONS (9)
  - Headache [None]
  - Dizziness [None]
  - Fatigue [None]
  - Gait disturbance [None]
  - Constipation [None]
  - Abdominal distension [None]
  - Hypoaesthesia [None]
  - Paraesthesia [None]
  - Urinary retention [None]

NARRATIVE: CASE EVENT DATE: 20190320
